FAERS Safety Report 18709562 (Version 8)
Quarter: 2021Q4

REPORT INFORMATION
  Report Type: Other
  Country: US (occurrence: None)
  Receive Date: 20210107
  Receipt Date: 20211105
  Transmission Date: 20220303
  Serious: Yes (Hospitalization)
  Sender: FDA-Public Use
  Company Number: US-ROCHE-2744296

PATIENT
  Age: 3 Year
  Sex: Female
  Weight: 10 kg

DRUGS (9)
  1. EVRYSDI [Suspect]
     Active Substance: RISDIPLAM
     Indication: Spinal muscular atrophy
     Dosage: STRENGTH  0.75 MG/ML
     Route: 048
     Dates: start: 20201112
  2. EVRYSDI [Suspect]
     Active Substance: RISDIPLAM
     Indication: Spinal muscular atrophy
     Dosage: 0.75 MG/ML, 80 ML IN 100 ML BOTTLE
     Route: 048
  3. EVRYSDI [Suspect]
     Active Substance: RISDIPLAM
     Indication: Spinal muscular atrophy
     Dosage: BY MOUTH OR VIA G-TUBE
     Route: 048
  4. EVRYSDI [Suspect]
     Active Substance: RISDIPLAM
     Indication: Spinal muscular atrophy
  5. EVRYSDI [Suspect]
     Active Substance: RISDIPLAM
     Indication: Spinal muscular atrophy
  6. BACTRIM [Suspect]
     Active Substance: SULFAMETHOXAZOLE\TRIMETHOPRIM
     Indication: Product used for unknown indication
     Route: 065
  7. FLUCONAZOLE [Concomitant]
     Active Substance: FLUCONAZOLE
     Indication: Product used for unknown indication
     Route: 048
  8. FAMOTIDINE [Concomitant]
     Active Substance: FAMOTIDINE
     Route: 048
  9. ZYRTEC (UNITED STATES) [Concomitant]
     Route: 048

REACTIONS (14)
  - Pyrexia [Unknown]
  - Tachycardia [Not Recovered/Not Resolved]
  - Drug interaction [Unknown]
  - Upper respiratory tract infection [Unknown]
  - Nausea [Unknown]
  - Joint warmth [Unknown]
  - Rash [Unknown]
  - Hepatic function abnormal [Unknown]
  - Weight decreased [Unknown]
  - Eosinophil count increased [Recovered/Resolved]
  - Hepatic enzyme increased [Not Recovered/Not Resolved]
  - Pneumonia [Recovering/Resolving]
  - Pyrexia [Recovering/Resolving]
  - Sinusitis [Recovering/Resolving]

NARRATIVE: CASE EVENT DATE: 20210101
